FAERS Safety Report 8131859-2 (Version None)
Quarter: 2012Q1

REPORT INFORMATION
  Report Type: 
  Country: None (occurrence: None)
  Receive Date: 20120213
  Receipt Date: 20120209
  Transmission Date: 20120608
  Serious: Yes (Other)
  Sender: FDA-Public Use
  Company Number: US-PFIZER INC-2012036991

PATIENT
  Sex: Female
  Weight: 75.283 kg

DRUGS (5)
  1. CHANTIX [Suspect]
     Indication: SMOKING CESSATION THERAPY
     Dosage: 0.5 MG, 2X/DAY
     Route: 048
     Dates: start: 20111231, end: 20120131
  2. CHANTIX [Suspect]
     Dosage: 0.5 MG, 2X/DAY
     Route: 048
     Dates: start: 20120206, end: 20120201
  3. CHANTIX [Suspect]
     Dosage: UNK
     Dates: start: 20120201
  4. ASPIRIN [Concomitant]
     Dosage: UNK
  5. LANTUS [Concomitant]
     Dosage: UNK

REACTIONS (1)
  - NERVE COMPRESSION [None]
